FAERS Safety Report 17708028 (Version 4)
Quarter: 2020Q2

REPORT INFORMATION
  Report Type: Spontaneous
  Country: CA (occurrence: CA)
  Receive Date: 20200425
  Receipt Date: 20200617
  Transmission Date: 20200714
  Serious: Yes (Other)
  Sender: FDA-Public Use
  Company Number: CA-CELLTRION INC.-2018CA025348

PATIENT

DRUGS (31)
  1. INFLECTRA [Suspect]
     Active Substance: INFLIXIMAB-DYYB
     Dosage: 300 MG/Q 0, 2, 6 WEEKS, THEN EVERY 8 WEEKS
     Route: 042
     Dates: start: 20200609
  2. SILVEM-RABEPRAZOLE [Concomitant]
     Dosage: 20 MG 1 DF, DAILY
     Route: 048
  3. HYDROCORTISONE. [Concomitant]
     Active Substance: HYDROCORTISONE
     Dosage: HYDROCORTISONE 1% CREAM (APPLY TO GROINS BID FOR 14 DAYS AND STOP)
     Route: 061
  4. INFLECTRA [Suspect]
     Active Substance: INFLIXIMAB-DYYB
     Indication: CROHN^S DISEASE
     Dosage: 300 MG, 2, 6 WEEKS, THEN EVERY 8 WEEKS)
     Route: 042
     Dates: start: 20180627
  5. MINT-QUETIAPINE [Concomitant]
     Dosage: 25 MG, 1 TABLET 2X/DAY
  6. CLINDOXYL [Concomitant]
     Active Substance: BENZOYL PEROXIDE\CLINDAMYCIN PHOSPHATE
     Dosage: APPLY TO LEFT CHEEK OF FACE ONCE DAILY AFTER WASHING AND PATTING DRY FACE
     Route: 065
  7. NITROFURANTOIN. [Concomitant]
     Active Substance: NITROFURANTOIN
     Dosage: 50 MG, UNK (FOR 3 MONTHS)
     Dates: start: 20181012
  8. PENTASA [Concomitant]
     Active Substance: MESALAMINE
     Dosage: 4 G, DAILY
     Route: 048
  9. IRON [Concomitant]
     Active Substance: IRON
     Indication: SUPPLEMENTATION THERAPY
     Dosage: UNK
     Route: 048
  10. DIEM-VITAMIN D [Concomitant]
     Dosage: 400 1 DF, EVERY 2 DAYS
     Route: 048
  11. SILVEM-AMLODIPINE [Concomitant]
     Dosage: 2.5 MG 1 DF, DAILY
     Route: 048
  12. JAMP FERROUS SULFATE [Concomitant]
     Active Substance: FERROUS SULFATE
     Dosage: (300 MG) 1 DF, 1X/DAY, IN THE EVENING WITH FOOD
     Route: 048
  13. D-TABS [Concomitant]
     Active Substance: CHOLECALCIFEROL
     Dosage: (10 000 UNITS) 1 DF, WEEKLY ON WEDNESDAYS
     Route: 048
  14. PSYLLIUM [PLANTAGO AFRA] [Concomitant]
     Active Substance: PLANTAGO AFRA SEED
     Dosage: 7 G, DAILY
     Route: 048
  15. PANTOPRAZOLE [Concomitant]
     Active Substance: PANTOPRAZOLE
     Dosage: 40 MG, DAILY
     Route: 048
  16. INFLECTRA [Suspect]
     Active Substance: INFLIXIMAB-DYYB
     Dosage: UNK
     Dates: start: 20180710
  17. INFLECTRA [Suspect]
     Active Substance: INFLIXIMAB-DYYB
     Dosage: UNK
     Dates: start: 20190905
  18. INFLECTRA [Suspect]
     Active Substance: INFLIXIMAB-DYYB
     Dosage: 300 MG/Q 0, 2, 6 WEEKS, THEN EVERY 8 WEEKS
     Route: 042
     Dates: start: 20191223
  19. INFLECTRA [Suspect]
     Active Substance: INFLIXIMAB-DYYB
     Dosage: 300 MG/Q 0, 2, 6 WEEKS, THEN EVERY 8 WEEKS
     Route: 042
     Dates: start: 20200415
  20. CALCIUM CARBONATE. [Concomitant]
     Active Substance: CALCIUM CARBONATE
     Dosage: 1250 MG, 1X/DAY [NOON]
     Route: 048
  21. NOVO-CHLORPROMAZINE [Concomitant]
     Dosage: 25 MG, 3 TABLETS AT BEDTIME
     Route: 048
  22. PMS CLONAZEPAM [Concomitant]
     Dosage: 0.5 MG - 2 TABLETS, 1X/DAY AT BEDTIME
     Route: 048
  23. MULTIVITAMINS [VITAMINS NOS] [Concomitant]
     Active Substance: VITAMINS
     Dosage: 1 DF, DAILY
     Route: 048
  24. JAMP CALCIUM [Concomitant]
     Dosage: 500 MG 1 TABLET DAILY AT NOON
     Route: 048
  25. MULTI-VITAMINS (WEBBER) [Concomitant]
     Dosage: 1 DF, DAILY
     Route: 048
  26. INFLECTRA [Suspect]
     Active Substance: INFLIXIMAB-DYYB
     Dosage: 300 MG/Q 0, 2, 6 WEEKS, THEN EVERY 8 WEEKS
     Route: 042
     Dates: start: 20200218
  27. 5-AMINOSALICYLIC ACID [Concomitant]
     Active Substance: MESALAMINE
     Dosage: 1000 MG, 4X/DAY [500 MG TAB- 2 TAB QID]
     Route: 048
  28. INFLECTRA [Suspect]
     Active Substance: INFLIXIMAB-DYYB
     Dosage: UNK
     Dates: start: 20180807
  29. INFLECTRA [Suspect]
     Active Substance: INFLIXIMAB-DYYB
     Dosage: 300 MG/Q 0, 2, 6 WEEKS, THEN EVERY 8 WEEKS
     Route: 042
     Dates: start: 20191029
  30. PMS-VALPROIC ACID [Concomitant]
     Active Substance: VALPROIC ACID
     Dosage: 15 ML, 15 ML (750 MG) Q HS
     Route: 048
  31. NITROFURANTOIN. [Concomitant]
     Active Substance: NITROFURANTOIN
     Dosage: 100 MG, 2X/DAY [CC FOR 5 DAYS]
     Route: 048
     Dates: start: 201808, end: 20180813

REACTIONS (3)
  - Off label use [Unknown]
  - Weight fluctuation [Unknown]
  - Intentional product use issue [Unknown]

NARRATIVE: CASE EVENT DATE: 20191029
